FAERS Safety Report 8452814-9 (Version None)
Quarter: 2012Q2

REPORT INFORMATION
  Report Type: 
  Country: None (occurrence: None)
  Receive Date: 20120620
  Receipt Date: 20120427
  Transmission Date: 20120825
  Serious: No
  Sender: FDA-Public Use
  Company Number: US-VERTEX PHARMACEUTICALS INC.-AE-2012-006140

PATIENT
  Sex: Male
  Weight: 97.5 kg

DRUGS (6)
  1. CORTEF [Concomitant]
  2. ANDROGEL [Concomitant]
  3. RIBASPHERE [Concomitant]
     Indication: HEPATITIS C
     Dates: start: 20120224
  4. INCIVEK [Suspect]
     Indication: HEPATITIS C
     Route: 048
     Dates: start: 20120224
  5. GENOTROPIN [Concomitant]
     Indication: PITUITARY TUMOUR
  6. PEGASYS [Concomitant]
     Indication: HEPATITIS C
     Route: 058
     Dates: start: 20120224

REACTIONS (2)
  - BACK PAIN [None]
  - ARTHRALGIA [None]
